FAERS Safety Report 7561269-8 (Version None)
Quarter: 2011Q2

REPORT INFORMATION
  Report Type: 
  Country: None (occurrence: None)
  Receive Date: 20110621
  Receipt Date: 20101213
  Transmission Date: 20111010
  Serious: No
  Sender: FDA-Public Use
  Company Number: US-ASTRAZENECA-2010SE58836

PATIENT
  Age: 65 Year
  Sex: Female

DRUGS (1)
  1. PULMICORT FLEXHALER [Suspect]
     Indication: COUGH
     Dosage: TWO PUFFS IN AM AND TWO PUFFS IN PM
     Route: 055
     Dates: start: 20100101

REACTIONS (2)
  - ASTHMA [None]
  - DRUG DOSE OMISSION [None]
